FAERS Safety Report 9388280 (Version 2)
Quarter: 2013Q3

REPORT INFORMATION
  Report Type: Spontaneous
  Country: US (occurrence: None)
  Receive Date: 20130703
  Receipt Date: 20130819
  Transmission Date: 20140515
  Serious: Yes (Death)
  Sender: FDA-Public Use
  Company Number: 2013-259

PATIENT
  Age: 44 Year
  Sex: Male

DRUGS (11)
  1. FAZACLO [Suspect]
     Indication: BIPOLAR DISORDER
     Dosage: 100-250 MG, QD, ORAL
     Route: 048
     Dates: start: 20120229
  2. FAZACLO [Suspect]
     Indication: DELUSION
     Dosage: 100-250 MG, QD, ORAL
     Route: 048
     Dates: start: 20120229
  3. FAZACLO [Suspect]
     Indication: PSYCHOTIC DISORDER
     Dosage: 100-250 MG, QD, ORAL
     Route: 048
     Dates: start: 20120229
  4. COLACE [Concomitant]
  5. SENNA (SENNA ALEXANDRINA) [Concomitant]
  6. FERROUS SULFATE (FERROUS SULFATE) [Concomitant]
  7. VITAMIN D (ERGOCALCIFEROL) [Concomitant]
  8. WELLBUTRIN (BUPROPION HYDROCHLORIDE) [Concomitant]
  9. PROTONIX (PANTOPRAZOLE SODIUM SESQUILHYDRATE) [Concomitant]
  10. ANAFRANIL (CLOMIPRAMINE HYDROCHLORIDE) [Concomitant]
  11. DEPAKOTE (VALPROATE SEMISODIUM) [Concomitant]

REACTIONS (3)
  - Burns third degree [None]
  - Completed suicide [None]
  - Depression [None]
